FAERS Safety Report 23289338 (Version 1)
Quarter: 2023Q4

REPORT INFORMATION
  Report Type: Spontaneous
  Country: IL (occurrence: IL)
  Receive Date: 20231212
  Receipt Date: 20231212
  Transmission Date: 20240110
  Serious: Yes (Other)
  Sender: FDA-Public Use
  Company Number: IL-002147023-NVSC2023IL260615

PATIENT
  Age: 31 Year
  Sex: Male

DRUGS (1)
  1. CYCLOSPORINE [Suspect]
     Active Substance: CYCLOSPORINE
     Indication: Dermatitis atopic
     Dosage: 450 MG, QD (5MG/KG/DAY)
     Route: 065
     Dates: start: 20200101, end: 20201001

REACTIONS (1)
  - Hypertension [Unknown]
